FAERS Safety Report 13243746 (Version 1)
Quarter: 2017Q1

REPORT INFORMATION
  Report Type: Report from Study
  Country: FR (occurrence: FR)
  Receive Date: 20170217
  Receipt Date: 20170217
  Transmission Date: 20170428
  Serious: Yes (Hospitalization)
  Sender: FDA-Public Use
  Company Number: FR-PFIZER INC-2011190326

PATIENT
  Age: 59 Year
  Sex: Male

DRUGS (4)
  1. ARACYTINE [Suspect]
     Active Substance: CYTARABINE
     Dosage: UNK
     Route: 042
     Dates: start: 20090107, end: 20090114
  2. CERUBIDINE [Suspect]
     Active Substance: DAUNORUBICIN HYDROCHLORIDE
     Dosage: UNK
     Dates: start: 20090107, end: 20090109
  3. ARACYTINE [Suspect]
     Active Substance: CYTARABINE
     Indication: ACUTE MYELOID LEUKAEMIA
     Dosage: UNK
     Route: 042
     Dates: start: 20080926, end: 20081002
  4. CERUBIDINE [Suspect]
     Active Substance: DAUNORUBICIN HYDROCHLORIDE
     Indication: ACUTE MYELOID LEUKAEMIA
     Dosage: UNK
     Dates: start: 20080926, end: 20080928

REACTIONS (2)
  - Hepatitis cholestatic [Recovered/Resolved]
  - Hepatic candidiasis [Recovered/Resolved]

NARRATIVE: CASE EVENT DATE: 20081007
